FAERS Safety Report 7892734-1 (Version None)
Quarter: 2011Q4

REPORT INFORMATION
  Report Type: 
  Country: None (occurrence: None)
  Receive Date: 20111104
  Receipt Date: 20111102
  Transmission Date: 20120403
  Serious: Yes (Other)
  Sender: FDA-Public Use
  Company Number: PHHY2011AR96932

PATIENT
  Sex: Male

DRUGS (2)
  1. RISPERIDONE [Concomitant]
     Dosage: UNK UKN, UNK
  2. RITALIN LA [Suspect]
     Indication: DISTURBANCE IN ATTENTION
     Dosage: 1 DF, QD
     Dates: end: 20111026

REACTIONS (5)
  - DIZZINESS [None]
  - ASTHENIA [None]
  - HEADACHE [None]
  - VASCULAR INJURY [None]
  - CONVULSION [None]
